FAERS Safety Report 15667526 (Version 3)
Quarter: 2019Q1

REPORT INFORMATION
  Report Type: Spontaneous
  Country: US (occurrence: US)
  Receive Date: 20181128
  Receipt Date: 20190318
  Transmission Date: 20190417
  Serious: No
  Sender: FDA-Public Use
  Company Number: US-PFIZER INC-2018482089

PATIENT
  Age: 43 Year
  Sex: Female
  Weight: 93 kg

DRUGS (7)
  1. DOCETAXEL. [Suspect]
     Active Substance: DOCETAXEL
     Dosage: 143 MG, SINGLE
     Dates: start: 20150706, end: 20150706
  2. CYTOXAN [Concomitant]
     Active Substance: CYCLOPHOSPHAMIDE
     Indication: CHEMOTHERAPY
     Dosage: UNK
  3. EXCEDRIN MIGRAINE OTC [Concomitant]
     Dosage: UNK
     Dates: start: 2014
  4. DOCETAXEL. [Suspect]
     Active Substance: DOCETAXEL
     Indication: BREAST CANCER FEMALE
     Dosage: 145 MG, SINGLE
     Dates: start: 20150615, end: 20150615
  5. DOCETAXEL. [Suspect]
     Active Substance: DOCETAXEL
     Dosage: 143 MG, SINGLE
     Dates: start: 20150727, end: 20150727
  6. DOCETAXEL. [Suspect]
     Active Substance: DOCETAXEL
     Dosage: 144 MG, SINGLE
     Dates: start: 20150817, end: 20150817
  7. NEOSAR [Concomitant]
     Active Substance: CYCLOPHOSPHAMIDE
     Indication: CHEMOTHERAPY
     Dosage: UNK

REACTIONS (5)
  - Hair colour changes [Not Recovered/Not Resolved]
  - Alopecia [Not Recovered/Not Resolved]
  - Hair texture abnormal [Not Recovered/Not Resolved]
  - Hair disorder [Not Recovered/Not Resolved]
  - Madarosis [Not Recovered/Not Resolved]

NARRATIVE: CASE EVENT DATE: 201506
